FAERS Safety Report 4658397-3 (Version None)
Quarter: 2005Q2

REPORT INFORMATION
  Report Type: 
  Country: None (occurrence: None)
  Receive Date: 20050509
  Receipt Date: 20050426
  Transmission Date: 20051028
  Serious: Yes (Other)
  Sender: FDA-Public Use
  Company Number: 2005066595

PATIENT
  Age: 81 Year
  Sex: Female
  Weight: 68.0396 kg

DRUGS (12)
  1. CELEBREX [Suspect]
     Indication: ARTHRITIS
     Dosage: 200 MG (200 MG, 1 IN 1 D), ORAL
     Route: 048
     Dates: end: 20050101
  2. CELEBREX [Suspect]
     Indication: PAIN
     Dosage: 200 MG (200 MG, 1 IN 1 D), ORAL
     Route: 048
     Dates: end: 20050101
  3. ARTHROTEC [Suspect]
     Indication: ILL-DEFINED DISORDER
     Dates: start: 20050101
  4. ALLOPURINOL [Concomitant]
  5. FEXOFENADINE HYDROCHLORIDE [Concomitant]
  6. ANASTROZOLE (ANASTROZOLE) [Concomitant]
  7. CIMETIDINE [Concomitant]
  8. GLYBURIDE [Concomitant]
  9. MULTIVITAMINS (ASCORBIC ACID, ERGOCALCIFEROL, FOLIC ACID, NICOTINAMIDE [Concomitant]
  10. ASPIRIN [Concomitant]
  11. CLOPIDOGREL BISULFATE [Concomitant]
  12. TOCOPHEROL (TOCOPHEROL) [Concomitant]

REACTIONS (3)
  - AMNESIA [None]
  - COLONIC POLYP [None]
  - CYSTITIS [None]
